FAERS Safety Report 9782661 (Version 1)
Quarter: 2013Q4

REPORT INFORMATION
  Report Type: Spontaneous
  Country: FR (occurrence: None)
  Receive Date: 20131220
  Receipt Date: 20131220
  Transmission Date: 20140711
  Serious: Yes (Hospitalization)
  Sender: FDA-Public Use
  Company Number: 1953778

PATIENT
  Age: 52 Year
  Sex: Female

DRUGS (6)
  1. CARBOPLATIN [Suspect]
     Indication: OVARIAN CANCER
     Route: 041
     Dates: start: 20120102, end: 20120102
  2. PACLITAXEL EBEWE [Concomitant]
  3. POLARAMINE [Concomitant]
  4. METHYLPREDNISOLONE MERCK [Concomitant]
  5. ZOPHEN [Concomitant]
  6. AZANTAC [Concomitant]

REACTIONS (5)
  - Vomiting [None]
  - Pruritus [None]
  - Feeling hot [None]
  - Erythema [None]
  - Drug hypersensitivity [None]
